FAERS Safety Report 14361906 (Version 1)
Quarter: 2018Q1

REPORT INFORMATION
  Report Type: Spontaneous
  Country: US (occurrence: US)
  Receive Date: 20180108
  Receipt Date: 20180108
  Transmission Date: 20180509
  Serious: No
  Sender: FDA-Public Use
  Company Number: US-AUROBINDO-AUR-APU-2017-35778

PATIENT

DRUGS (1)
  1. OXYCODONE HYDROCHLORIDE TABLETS USP 5 MG [Suspect]
     Active Substance: OXYCODONE HYDROCHLORIDE
     Indication: CERVICAL SPINAL STENOSIS
     Dosage: 4 DF, FOUR TIMES/DAY(01 PILL IN EVERY 06 HOURS)
     Route: 065
     Dates: start: 201703

REACTIONS (4)
  - Muscle spasms [Unknown]
  - Gastrointestinal disorder [Unknown]
  - Nausea [Unknown]
  - Migraine [Unknown]
